FAERS Safety Report 6608007-0 (Version None)
Quarter: 2010Q1

REPORT INFORMATION
  Report Type: 
  Country: None (occurrence: None)
  Receive Date: 20100226
  Receipt Date: 20100226
  Transmission Date: 20100710
  Serious: Yes (Death, Hospitalization)
  Sender: FDA-Public Use
  Company Number: None

PATIENT
  Age: 39 Year
  Sex: Male
  Weight: 118 kg

DRUGS (1)
  1. ANTABUSE [Suspect]
     Indication: ALCOHOL ABUSE
     Dosage: UNK UNK ORAL 047
     Route: 048

REACTIONS (4)
  - COAGULOPATHY [None]
  - JAUNDICE [None]
  - MALAISE [None]
  - MENTAL STATUS CHANGES [None]
